FAERS Safety Report 9552305 (Version 2)
Quarter: 2013Q4

REPORT INFORMATION
  Report Type: Spontaneous
  Country: US (occurrence: None)
  Receive Date: 20130923
  Receipt Date: 20131126
  Transmission Date: 20140711
  Serious: Yes (Life-Threatening, Hospitalization, Disabling)
  Sender: FDA-Public Use
  Company Number: 2013PL000157

PATIENT
  Age: 25 Month
  Sex: Female
  Weight: 10.2 kg

DRUGS (14)
  1. PROLEUKIN [Suspect]
     Indication: NEUROBLASTOMA
     Route: 042
     Dates: start: 20130812, end: 20130815
  2. ISOTRETINOIN [Suspect]
     Indication: NEUROBLASTOMA
     Route: 048
     Dates: start: 20130708
  3. FILGRASTIM [Suspect]
     Indication: NEUROBLASTOMA
     Route: 058
     Dates: start: 20130628, end: 20130711
  4. OXYCODONE [Concomitant]
  5. ONDANSETRON [Concomitant]
  6. UNSPECIFIED INGREDIENT [Concomitant]
  7. BACTRIM [Concomitant]
  8. BENADRYL/00000402/ [Concomitant]
  9. REGLAN/00041901/ [Concomitant]
  10. PARACETAMOL [Concomitant]
  11. HYDROMORPHONE [Concomitant]
  12. LEVOFLOXACIN [Concomitant]
  13. FLAGYL/00012501/(FLAGYL-METRONIDAZOLE) [Concomitant]
  14. ALBUMIN HUMAN [Concomitant]

REACTIONS (2)
  - Hypokalaemia [None]
  - Hypophosphataemia [None]
